FAERS Safety Report 5694819-7 (Version None)
Quarter: 2008Q2

REPORT INFORMATION
  Report Type: 
  Country: None (occurrence: None)
  Receive Date: 20080404
  Receipt Date: 20080331
  Transmission Date: 20081010
  Serious: Yes (Other)
  Sender: FDA-Public Use
  Company Number: FR-MERCK-0707FRA00002

PATIENT
  Age: 37 Year
  Sex: Female

DRUGS (5)
  1. SINGULAIR [Suspect]
     Indication: ASTHMA
     Route: 048
     Dates: end: 20070628
  2. FLUTICASONE PROPIONATE [Concomitant]
     Indication: ASTHMA
  3. FORMOTEROL FUMARATE [Concomitant]
     Indication: ASTHMA
  4. LEVOCETIRIZINE HYDROCHLORIDE [Concomitant]
     Route: 048
  5. ESOMEPRAZOLE MAGNESIUM [Concomitant]
     Route: 048

REACTIONS (2)
  - ABORTION SPONTANEOUS [None]
  - DRUG EXPOSURE DURING PREGNANCY [None]
